FAERS Safety Report 19868697 (Version 1)
Quarter: 2021Q3

REPORT INFORMATION
  Report Type: Report from Study
  Country: US (occurrence: US)
  Receive Date: 20210922
  Receipt Date: 20210922
  Transmission Date: 20211014
  Serious: Yes (Other)
  Sender: FDA-Public Use
  Company Number: US-ASTRAZENECA-2021A727471

PATIENT
  Age: 546 Month
  Sex: Female
  Weight: 72.6 kg

DRUGS (2)
  1. SAPHNELO [Suspect]
     Active Substance: ANIFROLUMAB-FNIA
     Indication: SYSTEMIC LUPUS ERYTHEMATOSUS
     Route: 042
     Dates: start: 20210821
  2. HYDROXYCHLOROQUINE [Concomitant]
     Active Substance: HYDROXYCHLOROQUINE

REACTIONS (10)
  - Nausea [Not Recovered/Not Resolved]
  - Fatigue [Not Recovered/Not Resolved]
  - Rash [Recovered/Resolved]
  - Migraine [Not Recovered/Not Resolved]
  - Nervous system disorder [Recovered/Resolved]
  - Gait inability [Recovered/Resolved]
  - Dyskinesia [Recovered/Resolved]
  - Unresponsive to stimuli [Recovered/Resolved]
  - Urticaria [Recovered/Resolved]
  - Bone pain [Not Recovered/Not Resolved]

NARRATIVE: CASE EVENT DATE: 202108
